FAERS Safety Report 18538277 (Version 4)
Quarter: 2021Q1

REPORT INFORMATION
  Report Type: Spontaneous
  Country: JP (occurrence: JP)
  Receive Date: 20201123
  Receipt Date: 20210309
  Transmission Date: 20210419
  Serious: Yes (Hospitalization, Other)
  Sender: FDA-Public Use
  Company Number: JP-009507513-2011JPN001932J

PATIENT
  Age: 50 Year
  Sex: Male
  Weight: 53 kg

DRUGS (9)
  1. REBAMIPIDE [Concomitant]
     Active Substance: REBAMIPIDE
     Indication: PAIN
     Dosage: 1 DOSAGE FORM, QID
     Route: 048
     Dates: start: 20200918
  2. VESICARE [Concomitant]
     Active Substance: SOLIFENACIN SUCCINATE
     Indication: HYPERTONIC BLADDER
     Dosage: 1 DOSAGE FORM, QD
     Route: 048
  3. ENALAPRIL [Concomitant]
     Active Substance: ENALAPRIL
     Indication: HYPERTENSION
     Dosage: 1 DOSAGE FORM, QD
     Route: 048
  4. LOXONIN [Concomitant]
     Active Substance: LOXOPROFEN SODIUM
     Indication: PAIN
     Dosage: 1 DOSAGE FORM, QID
     Route: 048
     Dates: start: 20200918
  5. LOXONIN [Concomitant]
     Active Substance: LOXOPROFEN SODIUM
     Dosage: APPROPRIATE
     Route: 051
  6. BARACLUDE [Concomitant]
     Active Substance: ENTECAVIR
     Indication: HEPATITIS B
     Dosage: 1 DOSAGE FORM, QD
     Route: 048
     Dates: start: 20201025
  7. KEYTRUDA [Suspect]
     Active Substance: PEMBROLIZUMAB
     Indication: NASAL SINUS CANCER
     Dosage: 400 MILLIGRAM, EVERY 6 WEEKS
     Route: 041
     Dates: start: 20201021, end: 20201021
  8. CALONAL [Concomitant]
     Active Substance: ACETAMINOPHEN
     Indication: PAIN
     Dosage: 8 DOSAGE FORM, QD
     Route: 048
     Dates: start: 20200923
  9. TRAMADOL ACIS [Concomitant]
     Indication: PAIN
     Dosage: 8 DOSAGE FORM, QD
     Route: 048
     Dates: start: 20200923

REACTIONS (6)
  - Hypoglossal nerve paralysis [Recovered/Resolved]
  - Glossopharyngeal nerve paralysis [Recovering/Resolving]
  - Paralysis recurrent laryngeal nerve [Recovering/Resolving]
  - Interstitial lung disease [Recovering/Resolving]
  - Vocal cord paralysis [Recovering/Resolving]
  - Cranial nerve palsies multiple [Unknown]

NARRATIVE: CASE EVENT DATE: 20201102
